FAERS Safety Report 22389252 (Version 1)
Quarter: 2023Q2

REPORT INFORMATION
  Report Type: Spontaneous
  Country: DE (occurrence: DE)
  Receive Date: 20230531
  Receipt Date: 20230531
  Transmission Date: 20230722
  Serious: Yes (Other)
  Sender: FDA-Public Use
  Company Number: DE-BIOCRYST PHARMACEUTICALS, INC.-2023BCR00415

PATIENT

DRUGS (7)
  1. ORLADEYO [Suspect]
     Active Substance: BEROTRALSTAT HYDROCHLORIDE
     Dosage: UNK UNK, QD
     Route: 048
     Dates: start: 20230501
  2. PANTOPRAZOLE [Concomitant]
     Active Substance: PANTOPRAZOLE
     Dosage: 20 MG
  3. IBUPROFEN [Concomitant]
     Active Substance: IBUPROFEN
     Dosage: 400 MG
  4. DIMENHYDRINATE [Concomitant]
     Active Substance: DIMENHYDRINATE
     Dosage: UNK
  5. METAMIZOL [Concomitant]
     Active Substance: METAMIZOLE SODIUM
     Dosage: 1 G
  6. ICATIBANT [Concomitant]
     Active Substance: ICATIBANT ACETATE
     Dosage: 30 MG
  7. BERINERT [Concomitant]
     Active Substance: HUMAN C1-ESTERASE INHIBITOR
     Dosage: UNK

REACTIONS (4)
  - Laryngeal oedema [Recovered/Resolved]
  - Nausea [Recovered/Resolved]
  - Abdominal pain [Recovered/Resolved]
  - Vomiting [Recovered/Resolved]

NARRATIVE: CASE EVENT DATE: 20230505
